FAERS Safety Report 16611173 (Version 1)
Quarter: 2019Q3

REPORT INFORMATION
  Report Type: Spontaneous
  Country: US (occurrence: US)
  Receive Date: 20190722
  Receipt Date: 20190722
  Transmission Date: 20191004
  Serious: No
  Sender: FDA-Public Use
  Company Number: US-SA-2019SA192437

PATIENT
  Sex: Male

DRUGS (1)
  1. DUPIXENT [Suspect]
     Active Substance: DUPILUMAB
     Indication: ASTHMA
     Dosage: UNK, QOW
     Dates: start: 201905

REACTIONS (4)
  - Injection site pruritus [Unknown]
  - Injection site warmth [Unknown]
  - Injection site rash [Unknown]
  - Injection site erythema [Unknown]
